FAERS Safety Report 21589264 (Version 1)
Quarter: 2022Q4

REPORT INFORMATION
  Report Type: Spontaneous
  Country: DE (occurrence: DE)
  Receive Date: 20221114
  Receipt Date: 20221114
  Transmission Date: 20230113
  Serious: Yes (Other)
  Sender: FDA-Public Use
  Company Number: DE-drreddys-LIT/GER/22/0157092

PATIENT
  Age: 34 Year
  Sex: Female

DRUGS (4)
  1. LEVETIRACETAM [Suspect]
     Active Substance: LEVETIRACETAM
     Indication: Posterior reversible encephalopathy syndrome
  2. URAPIDIL [Suspect]
     Active Substance: URAPIDIL
     Indication: Posterior reversible encephalopathy syndrome
  3. CLONIDINE [Suspect]
     Active Substance: CLONIDINE
     Indication: Posterior reversible encephalopathy syndrome
  4. DIHYDRALAZINE [Suspect]
     Active Substance: DIHYDRALAZINE
     Indication: Posterior reversible encephalopathy syndrome

REACTIONS (1)
  - Drug ineffective for unapproved indication [Unknown]
